FAERS Safety Report 9253866 (Version 1)
Quarter: 2013Q2

REPORT INFORMATION
  Report Type: Spontaneous
  Country: KR (occurrence: None)
  Receive Date: 20130419
  Receipt Date: 20130419
  Transmission Date: 20140414
  Serious: Yes (Other)
  Sender: FDA-Public Use
  Company Number: INT_00237_2013

PATIENT
  Age: 68 Year
  Sex: Female

DRUGS (1)
  1. CEFEPIME (CEFEPIME) [Suspect]
     Indication: PNEUMONIA
     Dosage: (DOSE ADJUSTED TO IMPAIRED RENAL FUNCTION)
     Route: 042

REACTIONS (9)
  - Confusional state [None]
  - Stupor [None]
  - Tardive dyskinesia [None]
  - Electroencephalogram abnormal [None]
  - Status epilepticus [None]
  - Hypertensive crisis [None]
  - Infection [None]
  - Toxicity to various agents [None]
  - Metabolic encephalopathy [None]
